FAERS Safety Report 4964603-8 (Version None)
Quarter: 2006Q2

REPORT INFORMATION
  Report Type: 
  Country: None (occurrence: None)
  Receive Date: 20060406
  Receipt Date: 20050929
  Transmission Date: 20061013
  Serious: Yes (Hospitalization, Disabling)
  Sender: FDA-Public Use
  Company Number: US-MERCK-0510USA00201

PATIENT
  Age: 54 Year
  Sex: Male
  Weight: 93 kg

DRUGS (8)
  1. VIOXX [Suspect]
     Indication: RHEUMATOID ARTHRITIS
     Route: 048
     Dates: start: 20020201, end: 20030201
  2. PLAQUENIL [Concomitant]
     Route: 065
  3. [THERAPY UNSPECIFIED] [Concomitant]
     Route: 065
  4. PROTONIX [Concomitant]
     Route: 065
  5. ZANAFLEX [Concomitant]
     Route: 065
  6. PAXIL CR [Concomitant]
     Route: 065
  7. COUMADIN [Concomitant]
     Route: 065
  8. PROCARDIA XL [Concomitant]
     Route: 065

REACTIONS (8)
  - BRAIN STEM INFARCTION [None]
  - CEREBROVASCULAR ACCIDENT [None]
  - FALL [None]
  - HYPERLIPIDAEMIA [None]
  - HYPERTENSION [None]
  - INTERNATIONAL NORMALISED RATIO INCREASED [None]
  - LIPIDS INCREASED [None]
  - URINARY TRACT INFECTION [None]
